FAERS Safety Report 21012854 (Version 1)
Quarter: 2022Q2

REPORT INFORMATION
  Report Type: Spontaneous
  Country: US (occurrence: US)
  Receive Date: 20220627
  Receipt Date: 20220627
  Transmission Date: 20220720
  Serious: No
  Sender: FDA-Public Use
  Company Number: US-SA-SAC20220617000192

PATIENT
  Age: 39 Year
  Sex: Female

DRUGS (1)
  1. DUPIXENT [Suspect]
     Active Substance: DUPILUMAB
     Indication: Dermatitis atopic
     Dosage: 300 MG, QOW, FORMULATION: SOLUTION PEN-INJECTOR
     Route: 058
     Dates: start: 20210630

REACTIONS (2)
  - Eye irritation [Recovering/Resolving]
  - Eye pruritus [Recovering/Resolving]
